FAERS Safety Report 6590913-7 (Version None)
Quarter: 2010Q1

REPORT INFORMATION
  Report Type: 
  Country: None (occurrence: None)
  Receive Date: 20100219
  Receipt Date: 20100210
  Transmission Date: 20100710
  Serious: Yes (Hospitalization)
  Sender: FDA-Public Use
  Company Number: JP-ROCHE-685697

PATIENT
  Sex: Male
  Weight: 52 kg

DRUGS (7)
  1. AVASTIN [Suspect]
     Indication: COLON CANCER METASTATIC
     Route: 041
     Dates: start: 20090114, end: 20091216
  2. ELPLAT [Concomitant]
     Route: 041
     Dates: start: 20090114, end: 20091216
  3. 5-FU [Concomitant]
     Route: 041
     Dates: start: 20090114, end: 20091218
  4. ISOVORIN [Concomitant]
     Route: 041
     Dates: start: 20090114, end: 20091218
  5. ZOFRAN [Concomitant]
     Dosage: DRUG: ZOFRAN ZYDIS (ONDANSETRON)
     Route: 048
     Dates: start: 20090114, end: 20091220
  6. PRIMPERAN TAB [Concomitant]
     Route: 048
     Dates: start: 20090114, end: 20091220
  7. DECADRON [Concomitant]
     Route: 048
     Dates: start: 20090114, end: 20091220

REACTIONS (2)
  - PULMONARY ARTERY THROMBOSIS [None]
  - PULMONARY INFARCTION [None]
